FAERS Safety Report 16821494 (Version 1)
Quarter: 2019Q3

REPORT INFORMATION
  Report Type: Spontaneous
  Country: US (occurrence: US)
  Receive Date: 20190726
  Receipt Date: 20190726
  Transmission Date: 20191005
  Serious: Yes (Hospitalization)
  Sender: FDA-Public Use
  Company Number: None

PATIENT
  Age: 65 Year
  Sex: Male

DRUGS (9)
  1. VIMPAT TAB [Concomitant]
  2. PANTORPAZOLE TAB [Concomitant]
  3. LEVETIRACETA TAB [Concomitant]
  4. FLUTICASONE SPR [Concomitant]
  5. CAPECITABINE 500MG TAB [Suspect]
     Active Substance: CAPECITABINE
     Route: 048
     Dates: start: 20190419
  6. SPIRONOLACT TAB [Concomitant]
  7. FUROSEMIDE TAB [Concomitant]
  8. LEVOTHYROXIN TAB [Concomitant]
  9. LOPERAMIDE CAP [Concomitant]

REACTIONS (2)
  - Hospitalisation [None]
  - Therapy cessation [None]

NARRATIVE: CASE EVENT DATE: 20190725
